FAERS Safety Report 12780618 (Version 1)
Quarter: 2016Q3

REPORT INFORMATION
  Report Type: Spontaneous
  Country: IN (occurrence: IN)
  Receive Date: 20160926
  Receipt Date: 20160926
  Transmission Date: 20161109
  Serious: Yes (Death, Hospitalization)
  Sender: FDA-Public Use
  Company Number: IN-SA-2016SA175416

PATIENT
  Age: 32 Year
  Sex: Female

DRUGS (8)
  1. ISONIAZID. [Concomitant]
     Active Substance: ISONIAZID
     Indication: MASTITIS BACTERIAL
  2. PYRAZINAMIDE. [Concomitant]
     Active Substance: PYRAZINAMIDE
     Indication: MASTITIS BACTERIAL
  3. ETHAMBUTOL [Concomitant]
     Active Substance: ETHAMBUTOL HYDROCHLORIDE
     Indication: MASTITIS BACTERIAL
  4. PYRAZINAMIDE. [Concomitant]
     Active Substance: PYRAZINAMIDE
     Indication: MASTITIS BACTERIAL
  5. RIFAMPICIN [Suspect]
     Active Substance: RIFAMPIN
     Indication: MASTITIS BACTERIAL
     Route: 065
  6. ISONIAZID. [Concomitant]
     Active Substance: ISONIAZID
     Indication: MASTITIS BACTERIAL
  7. RIFAMPICIN [Suspect]
     Active Substance: RIFAMPIN
     Indication: MASTITIS BACTERIAL
     Route: 065
  8. ETHAMBUTOL [Concomitant]
     Active Substance: ETHAMBUTOL HYDROCHLORIDE
     Indication: MASTITIS BACTERIAL

REACTIONS (14)
  - Eosinophil cationic protein increased [Unknown]
  - Urticaria [Unknown]
  - Hypoxia [Unknown]
  - Hypotension [Unknown]
  - Pneumonia [Unknown]
  - Pyrexia [Unknown]
  - Haemodynamic instability [Recovered/Resolved]
  - Acute respiratory distress syndrome [Unknown]
  - Shock [Unknown]
  - Anaphylactic reaction [Unknown]
  - Angioedema [Unknown]
  - Sepsis [Fatal]
  - Lymphocyte stimulation test positive [Unknown]
  - Pneumonia bacterial [Unknown]
